FAERS Safety Report 10028180 (Version 1)
Quarter: 2014Q1

REPORT INFORMATION
  Report Type: Report from Study
  Country: US (occurrence: US)
  Receive Date: 20140321
  Receipt Date: 20140321
  Transmission Date: 20141002
  Serious: No
  Sender: FDA-Public Use
  Company Number: PHEH2014US005511

PATIENT
  Sex: Female
  Weight: 67 kg

DRUGS (10)
  1. TASIGNA [Suspect]
     Indication: CHRONIC MYELOID LEUKAEMIA
     Dosage: 300 MG, BID
     Route: 048
     Dates: start: 20140219
  2. LEVOTHYROXINE [Concomitant]
     Dosage: 100 MG, UNK
  3. BACTRIM DS [Concomitant]
  4. CALCIUM [Concomitant]
  5. VITAMIN D [Concomitant]
  6. COUMADINE [Concomitant]
     Dosage: 2.5 MG, UNK
  7. FERROUS SULPHATE [Concomitant]
     Dosage: UNK UKN, UNK
  8. MULTI-VIT [Concomitant]
  9. OXYCODONE [Concomitant]
     Dosage: UNK UKN, UNK
  10. ZYRTEC [Concomitant]
     Dosage: UNK UKN, UNK

REACTIONS (1)
  - Muscle spasms [Unknown]
